FAERS Safety Report 5611755-2 (Version None)
Quarter: 2008Q1

REPORT INFORMATION
  Report Type: 
  Country: None (occurrence: None)
  Receive Date: 20080128
  Receipt Date: 20051110
  Transmission Date: 20080703
  Serious: Yes (Hospitalization)
  Sender: FDA-Public Use
  Company Number: DSA_27340_2005

PATIENT
  Sex: Female

DRUGS (2)
  1. DILTIAZEM HYDROCHLORIDE                                     (TIAZAC XC [Suspect]
     Dosage: (300 MG QD ORAL)
     Route: 048
  2. DILTIAZEM CD                  (DILTIAZEM CD) [Suspect]
     Dosage: (DF)

REACTIONS (2)
  - ATRIAL FIBRILLATION [None]
  - BRADYCARDIA [None]
